FAERS Safety Report 4451403-0 (Version None)
Quarter: 2004Q3

REPORT INFORMATION
  Report Type: 
  Country: None (occurrence: None)
  Receive Date: 20040916
  Receipt Date: 20040629
  Transmission Date: 20050211
  Serious: Yes (Hospitalization)
  Sender: FDA-Public Use
  Company Number: FR-ROCHE-372550

PATIENT
  Age: 42 Year
  Sex: Female
  Weight: 65 kg

DRUGS (9)
  1. FUZEON [Suspect]
     Indication: HIV INFECTION
     Route: 058
     Dates: start: 20040517, end: 20040605
  2. ZIAGEN [Concomitant]
     Indication: HIV INFECTION
     Route: 048
     Dates: start: 20040105
  3. RETROVIR [Concomitant]
     Indication: HIV INFECTION
     Route: 048
     Dates: start: 20040105
  4. VIDEX [Concomitant]
     Indication: HIV INFECTION
     Route: 048
     Dates: start: 20040517, end: 20040607
  5. WELLVONE [Concomitant]
     Dosage: THE PATIENT RECEIVED THIS DRUG FOR MORE THAN ONE YEAR
  6. SERC [Concomitant]
     Dosage: THE PATIENT RECEIVED THIS DRUG FOR MORE THAN ONE YEAR
  7. ZYRTEC [Concomitant]
     Dosage: THE PATIENT RECEIVED THIS DRUG FOR MORE THAN ONE YEAR
  8. CYSTINE-B6 [Concomitant]
     Dosage: THE PATIENT RECEIVED THIS DRUG FOR MORE THAN ONE YEAR.
  9. PROZAC [Concomitant]
     Dosage: THE PATIENT RECEIVED THIS DRUG FOR MORE THAN ONE YEAR

REACTIONS (8)
  - CHEST DISCOMFORT [None]
  - CHEST PAIN [None]
  - CHILLS [None]
  - FACE OEDEMA [None]
  - OEDEMA PERIPHERAL [None]
  - PHARYNGITIS [None]
  - PYREXIA [None]
  - TOXIC SKIN ERUPTION [None]
